FAERS Safety Report 23750491 (Version 3)
Quarter: 2025Q3

REPORT INFORMATION
  Report Type: Spontaneous
  Country: US (occurrence: US)
  Receive Date: 20240417
  Receipt Date: 20250702
  Transmission Date: 20251021
  Serious: No
  Sender: NOBELPHARMA AMERICA, LLC
  Company Number: US-Nobelpharma America, LLC-NPA-2024-00583

PATIENT
  Sex: Male

DRUGS (14)
  1. HYFTOR [Suspect]
     Active Substance: SIROLIMUS
     Indication: Tuberous sclerosis complex
     Dosage: APPLY 1 CM OR 300 MG TO AFFECTED AREA OF THE FACE TWICE DAILY
     Dates: start: 20230920
  2. HYFTOR [Suspect]
     Active Substance: SIROLIMUS
     Dosage: APPLY 1 APPLICATION TOPICALLY 1 (ONE) TIME EACH DAY
     Route: 061
     Dates: start: 20230920
  3. Allergy relief [Concomitant]
  4. AMLODIPINE BESYLATE [Concomitant]
     Active Substance: AMLODIPINE BESYLATE
  5. CETIRIZINE [Concomitant]
     Active Substance: CETIRIZINE HYDROCHLORIDE
  6. CLOBAZAM [Concomitant]
     Active Substance: CLOBAZAM
  7. CLONIDINE [Concomitant]
     Active Substance: CLONIDINE
  8. DIAZEPAM [Concomitant]
     Active Substance: DIAZEPAM
  9. ERGOCALCIFEROL [Concomitant]
     Active Substance: ERGOCALCIFEROL
  10. FLOVENT HFA [Concomitant]
     Active Substance: FLUTICASONE PROPIONATE
  11. FLUTICASONE [Concomitant]
     Active Substance: FLUTICASONE
  12. GABAPENTIN [Concomitant]
     Active Substance: GABAPENTIN
  13. ADVAIR HFA [Concomitant]
     Active Substance: FLUTICASONE PROPIONATE\SALMETEROL XINAFOATE
  14. EPIDIOLEX [Concomitant]
     Active Substance: CANNABIDIOL

REACTIONS (4)
  - Sensory level abnormal [Unknown]
  - Immune system disorder [Unknown]
  - Product dose omission issue [Unknown]
  - Off label use [Unknown]
